FAERS Safety Report 16931221 (Version 2)
Quarter: 2019Q4

REPORT INFORMATION
  Report Type: Spontaneous
  Country: US (occurrence: US)
  Receive Date: 20191017
  Receipt Date: 20191023
  Transmission Date: 20200122
  Serious: Yes (Other)
  Sender: FDA-Public Use
  Company Number: US-BIOMARINAP-US-2019-126024

PATIENT

DRUGS (2)
  1. VIMIZIM [Suspect]
     Active Substance: ELOSULFASE ALFA
     Dosage: 70 MILLIGRAN, INTRAVENOUS
     Route: 042
  2. VIMIZIM [Suspect]
     Active Substance: ELOSULFASE ALFA
     Indication: MUCOPOLYSACCHARIDOSIS IV
     Dosage: 75 MILLIGRAM, QW
     Route: 042
     Dates: start: 20160927

REACTIONS (1)
  - Spinal fusion surgery [Recovering/Resolving]

NARRATIVE: CASE EVENT DATE: 20190928
